FAERS Safety Report 7951357-6 (Version None)
Quarter: 2011Q4

REPORT INFORMATION
  Report Type: 
  Country: None (occurrence: None)
  Receive Date: 20111201
  Receipt Date: 20111121
  Transmission Date: 20120403
  Serious: Yes (Other)
  Sender: FDA-Public Use
  Company Number: US-CELGENEUS-163-21880-11080546

PATIENT
  Sex: Male

DRUGS (2)
  1. ZOMETA [Concomitant]
     Route: 065
     Dates: start: 20031201
  2. REVLIMID [Suspect]
     Dosage: 5 MILLIGRAM
     Route: 048
     Dates: start: 20071101, end: 20110901

REACTIONS (4)
  - ABSCESS LIMB [None]
  - IMMUNOSUPPRESSION [None]
  - MALIGNANT MELANOMA [None]
  - SQUAMOUS CELL CARCINOMA OF SKIN [None]
